FAERS Safety Report 16100001 (Version 1)
Quarter: 2019Q1

REPORT INFORMATION
  Report Type: Spontaneous
  Country: NO (occurrence: NO)
  Receive Date: 20190321
  Receipt Date: 20190321
  Transmission Date: 20190418
  Serious: Yes (Hospitalization)
  Sender: FDA-Public Use
  Company Number: NO-MYLANLABS-2019M1025149

PATIENT
  Age: 65 Year
  Sex: Male

DRUGS (4)
  1. TOUJEO [Interacting]
     Active Substance: INSULIN GLARGINE
     Indication: TYPE 2 DIABETES MELLITUS
     Dosage: 300 DOSAGE FORM, QD (300 UNITS PER 24 HOURS. 1 ML = 300 UNITS)
     Route: 058
     Dates: end: 20180525
  2. TOUJEO [Interacting]
     Active Substance: INSULIN GLARGINE
     Dosage: 140 DOSAGE FORM, QD (140 UNITS PER 24 HOURS)
     Route: 058
     Dates: start: 20180525
  3. IMDUR [Interacting]
     Active Substance: ISOSORBIDE MONONITRATE
     Indication: CORONARY ARTERY DISEASE
     Dosage: 90 MILLIGRAM, QD
     Route: 048
  4. METOPROLOL. [Suspect]
     Active Substance: METOPROLOL
     Indication: CORONARY ARTERY DISEASE
     Dosage: 200 MILLIGRAM, QD
     Route: 048

REACTIONS (2)
  - Drug interaction [Recovered/Resolved]
  - Bradycardia [Recovered/Resolved]

NARRATIVE: CASE EVENT DATE: 20180525
